FAERS Safety Report 9719292 (Version 1)
Quarter: 2013Q4

REPORT INFORMATION
  Report Type: Spontaneous
  Country: HN (occurrence: HN)
  Receive Date: 20131127
  Receipt Date: 20131127
  Transmission Date: 20140711
  Serious: Yes (Other)
  Sender: FDA-Public Use
  Company Number: PHHY2013HN136605

PATIENT
  Age: 68 Year
  Sex: Female

DRUGS (1)
  1. EXELON [Suspect]
     Dosage: UNK UKN, UNK

REACTIONS (3)
  - Varices oesophageal [Unknown]
  - Vomiting [Recovering/Resolving]
  - Nausea [Recovering/Resolving]
